FAERS Safety Report 22066943 (Version 1)
Quarter: 2023Q1

REPORT INFORMATION
  Report Type: Spontaneous
  Country: BR (occurrence: BR)
  Receive Date: 20230306
  Receipt Date: 20230306
  Transmission Date: 20230417
  Serious: Yes (Other)
  Sender: FDA-Public Use
  Company Number: BR-ABBOTT-2023A-1360511

PATIENT
  Sex: Male

DRUGS (1)
  1. DEPAKENE [Suspect]
     Active Substance: VALPROIC ACID
     Indication: Product used for unknown indication
     Dosage: DAILY DOSE: 7.5ML AT 8 A.M. AND 7.5ML AT 8 P.M.
     Route: 048

REACTIONS (4)
  - Seizure [Unknown]
  - Gait disturbance [Unknown]
  - Nervous system disorder [Unknown]
  - Off label use [Unknown]
